FAERS Safety Report 16767664 (Version 2)
Quarter: 2020Q3

REPORT INFORMATION
  Report Type: Spontaneous
  Country: US (occurrence: US)
  Receive Date: 20190903
  Receipt Date: 20200819
  Transmission Date: 20201102
  Serious: Yes (Other)
  Sender: FDA-Public Use
  Company Number: US-SA-2019SA246080

PATIENT

DRUGS (9)
  1. DOXYCYCLA [Concomitant]
  2. ALLEGRA [Concomitant]
     Active Substance: FEXOFENADINE HYDROCHLORIDE
  3. TRIAMCINOLON [TRIAMCINOLONE] [Concomitant]
     Active Substance: TRIAMCINOLONE
  4. ELIDEL [Concomitant]
     Active Substance: PIMECROLIMUS
  5. PREDNISONE. [Concomitant]
     Active Substance: PREDNISONE
  6. FOLIC ACID. [Concomitant]
     Active Substance: FOLIC ACID
  7. LAMOTRIGINE. [Concomitant]
     Active Substance: LAMOTRIGINE
  8. CLOBETASOL [Concomitant]
     Active Substance: CLOBETASOL
  9. DUPIXENT [Suspect]
     Active Substance: DUPILUMAB
     Indication: DERMATITIS ATOPIC
     Dosage: 300 MG, QOW
     Route: 058
     Dates: start: 2019

REACTIONS (4)
  - Staphylococcal infection [Recovered/Resolved]
  - Rash [Not Recovered/Not Resolved]
  - Dermatitis atopic [Not Recovered/Not Resolved]
  - Dermatitis atopic [Recovered/Resolved]

NARRATIVE: CASE EVENT DATE: 20190704
